FAERS Safety Report 19285581 (Version 3)
Quarter: 2021Q2

REPORT INFORMATION
  Report Type: Report from Study
  Country: JP (occurrence: JP)
  Receive Date: 20210521
  Receipt Date: 20210630
  Transmission Date: 20210717
  Serious: Yes (Hospitalization)
  Sender: FDA-Public Use
  Company Number: NVSC2021JP113123

PATIENT
  Age: 72 Year
  Sex: Male

DRUGS (22)
  1. CEFCAPENE PIVOXIL HYDROCHLORIDE [Concomitant]
     Active Substance: CEFCAPENE PIVOXIL HYDROCHLORIDE
     Indication: INFECTION PROPHYLAXIS
     Dosage: UNK
     Route: 065
     Dates: start: 20210521, end: 20210525
  2. OPALMON [Concomitant]
     Active Substance: LIMAPROST
     Indication: SPONDYLOLISTHESIS
     Dosage: UNK
     Route: 065
     Dates: start: 20050101
  3. ACETAZOLAMIDE. [Concomitant]
     Active Substance: ACETAZOLAMIDE
     Indication: PRODUCT USED FOR UNKNOWN INDICATION
     Dosage: UNK
     Route: 065
     Dates: start: 20210520, end: 20210520
  4. DIQUAS [Concomitant]
     Active Substance: DIQUAFOSOL TETRASODIUM
     Indication: FOREIGN BODY SENSATION IN EYES
     Dosage: OPTHALMIC SOLUTION 3 %
     Route: 047
     Dates: start: 20201111
  5. CELECOXIB. [Concomitant]
     Active Substance: CELECOXIB
     Indication: ARTHRALGIA
     Dosage: UNK
     Route: 065
     Dates: start: 20210301
  6. LANSOPRAZOLE. [Concomitant]
     Active Substance: LANSOPRAZOLE
     Indication: GASTROOESOPHAGEAL REFLUX PROPHYLAXIS
     Dosage: UNK
     Route: 065
     Dates: start: 20210519
  7. LEVOFLOXACIN. [Concomitant]
     Active Substance: LEVOFLOXACIN
     Indication: INFECTION PROPHYLAXIS
     Dosage: OPTHALMIC SOLUTION 1.5 %
     Route: 065
     Dates: start: 20210519
  8. LEVOFLOXACIN. [Concomitant]
     Active Substance: LEVOFLOXACIN
     Dosage: OPTHALMIC SOLUTION 1.5 %
     Route: 065
     Dates: start: 20210519, end: 20210526
  9. BIMATOPROST. [Concomitant]
     Active Substance: BIMATOPROST
     Indication: GLAUCOMA
     Dosage: 0.03 %
     Route: 047
     Dates: start: 20201111
  10. FLUMETHOLON [Concomitant]
     Active Substance: FLUOROMETHOLONE
     Indication: PROPHYLAXIS
     Dosage: UNK
     Route: 065
     Dates: start: 20210518
  11. BROMFENAC [Concomitant]
     Active Substance: BROMFENAC SODIUM
     Indication: INFECTION PROPHYLAXIS
     Dosage: NA OPTHALMIC SOLUTION 0.1%
     Route: 065
     Dates: start: 20210521
  12. ALPHAGAN P [Concomitant]
     Active Substance: BRIMONIDINE TARTRATE
     Indication: GLAUCOMA
     Dosage: 0.1 %
     Route: 047
     Dates: start: 20201111
  13. BEOVU [Suspect]
     Active Substance: BROLUCIZUMAB-DBLL
     Indication: RETINAL VEIN OCCLUSION
     Dosage: 6 MG
     Route: 031
     Dates: start: 20200303
  14. ASPARA POTASSIUM [Concomitant]
     Active Substance: POTASSIUM ASPARTATE
     Indication: PRODUCT USED FOR UNKNOWN INDICATION
     Dosage: UNK
     Route: 065
     Dates: start: 20210520, end: 20210520
  15. LOXOPROFEN SODIUM [Concomitant]
     Active Substance: LOXOPROFEN SODIUM
     Indication: SPONDYLOLISTHESIS
     Dosage: 100 MG
     Route: 065
     Dates: start: 20050101
  16. REBAMIPIDE [Concomitant]
     Active Substance: REBAMIPIDE
     Indication: PROPHYLAXIS
     Dosage: UNK
     Route: 065
     Dates: start: 20210301
  17. KALLIDINOGENASE [Concomitant]
     Active Substance: KALLIDINOGENASE
     Indication: RETINAL VEIN OCCLUSION
     Dosage: 50 UNITS
     Route: 065
     Dates: start: 20200205
  18. GLANATEC [Concomitant]
     Active Substance: RIPASUDIL HYDROCHLORIDE DIHYDRATE
     Indication: CONDITION AGGRAVATED
     Dosage: OPTHALMIC SOLUTION 0.4%
     Route: 065
     Dates: start: 20210519, end: 20210519
  19. PILOCARPINE. [Concomitant]
     Active Substance: PILOCARPINE
     Indication: CONDITION AGGRAVATED
     Dosage: UNK
     Route: 065
     Dates: start: 20210521
  20. SEIROGAN [Concomitant]
     Indication: PROPHYLAXIS AGAINST DIARRHOEA
     Dosage: UNK
     Route: 065
     Dates: start: 19900101
  21. MOHRUS PAP XR [Concomitant]
     Active Substance: KETOPROFEN
     Indication: SPONDYLOLISTHESIS
     Dosage: 120 MG
     Route: 065
     Dates: start: 20050101
  22. CARBAZOCHROME SODIUM SULFONATE [Concomitant]
     Active Substance: CARBAZOCHROME SODIUM SULFONATE
     Indication: RETINAL VEIN OCCLUSION
     Dosage: UNK
     Route: 065
     Dates: start: 20200205

REACTIONS (1)
  - Vitritis [Not Recovered/Not Resolved]

NARRATIVE: CASE EVENT DATE: 20210518
